FAERS Safety Report 23391380 (Version 1)
Quarter: 2024Q1

REPORT INFORMATION
  Report Type: Spontaneous
  Country: GB (occurrence: GB)
  Receive Date: 20240111
  Receipt Date: 20240111
  Transmission Date: 20240410
  Serious: Yes (Death, Other)
  Sender: FDA-Public Use
  Company Number: GB-MYLANLABS-2021M1046026

PATIENT
  Age: 39 Year
  Sex: Male

DRUGS (10)
  1. FLUOXETINE [Suspect]
     Active Substance: FLUOXETINE HYDROCHLORIDE
     Indication: Product used for unknown indication
     Dosage: 60 MILLIGRAM, DAILY
  2. CLOZARIL [Suspect]
     Active Substance: CLOZAPINE
     Indication: Schizophrenia
     Dosage: 275 MILLIGRAM, PM
     Route: 048
     Dates: start: 20121214
  3. CLOZARIL [Suspect]
     Active Substance: CLOZAPINE
     Dosage: 125 MILLIGRAM, AM
     Route: 048
     Dates: start: 20121214
  4. OMEPRAZOLE [Concomitant]
     Active Substance: OMEPRAZOLE
     Indication: Product used for unknown indication
     Dosage: 20 MILLIGRAM, QD
     Route: 048
  5. PREGABALIN [Concomitant]
     Active Substance: PREGABALIN
     Indication: Product used for unknown indication
     Dosage: 75 MILLIGRAM ONCE MANE, TWICE NOCTE
  6. VITAMIN B COMPLEX [Concomitant]
     Active Substance: CYANOCOBALAMIN\DEXPANTHENOL\NIACINAMIDE\PYRIDOXINE HYDROCHLORIDE\RIBOFLAVIN 5^-PHOSPHATE SODIUM\THIA
     Indication: Product used for unknown indication
     Dosage: UNK, TID
  7. LAMOTRIGINE [Concomitant]
     Active Substance: LAMOTRIGINE
     Indication: Product used for unknown indication
     Dosage: 200 MILLIGRAM, BID
     Route: 065
  8. LURASIDONE [Concomitant]
     Active Substance: LURASIDONE
     Indication: Product used for unknown indication
     Dosage: 148 MILLIGRAM, HS
     Route: 065
  9. THIAMINE [Concomitant]
     Active Substance: THIAMINE
     Indication: Product used for unknown indication
     Dosage: 100 MILLIGRAM, BID
  10. TRIHEXYPHENIDYL [Concomitant]
     Active Substance: TRIHEXYPHENIDYL
     Indication: Product used for unknown indication
     Dosage: 5 MILLIGRAM, QD
     Route: 048

REACTIONS (6)
  - Cardiac death [Fatal]
  - Toxicity to various agents [Fatal]
  - Antipsychotic drug level increased [Fatal]
  - Cardiomegaly [Fatal]
  - Pulmonary embolism [Fatal]
  - Weight increased [Unknown]

NARRATIVE: CASE EVENT DATE: 20210713
